FAERS Safety Report 12526917 (Version 2)
Quarter: 2016Q3

REPORT INFORMATION
  Report Type: Report from Study
  Country: US (occurrence: US)
  Receive Date: 20160705
  Receipt Date: 20160926
  Transmission Date: 20161109
  Serious: Yes (Hospitalization)
  Sender: FDA-Public Use
  Company Number: US-TAIHO ONCOLOGY INC-EU-2016-01473

PATIENT
  Sex: Male

DRUGS (13)
  1. FLOMAX [Concomitant]
     Active Substance: TAMSULOSIN HYDROCHLORIDE
  2. COUMADIN [Concomitant]
     Active Substance: WARFARIN SODIUM
  3. ZOLOFT [Concomitant]
     Active Substance: SERTRALINE HYDROCHLORIDE
     Dosage: NI
  4. LYRICA [Concomitant]
     Active Substance: PREGABALIN
  5. LONSURF [Suspect]
     Active Substance: TIPIRACIL HYDROCHLORIDE\TRIFLURIDINE
     Indication: RECTAL CANCER METASTATIC
     Route: 048
  6. PLAVIX [Concomitant]
     Active Substance: CLOPIDOGREL BISULFATE
  7. COREG [Concomitant]
     Active Substance: CARVEDILOL
  8. ACETYLSALICYLIC ACID [Concomitant]
     Active Substance: ASPIRIN
  9. LEXAPRO [Concomitant]
     Active Substance: ESCITALOPRAM OXALATE
  10. OXYBUTYNIN [Concomitant]
     Active Substance: OXYBUTYNIN
     Dosage: NI
  11. LEVEMIR [Concomitant]
     Active Substance: INSULIN DETEMIR
     Dosage: NI
  12. LIPITOR [Concomitant]
     Active Substance: ATORVASTATIN CALCIUM
  13. AMARYL [Concomitant]
     Active Substance: GLIMEPIRIDE

REACTIONS (1)
  - Urinary tract infection [Unknown]

NARRATIVE: CASE EVENT DATE: 2016
